FAERS Safety Report 7726693-9 (Version None)
Quarter: 2011Q3

REPORT INFORMATION
  Report Type: 
  Country: None (occurrence: None)
  Receive Date: 20110902
  Receipt Date: 20110902
  Transmission Date: 20111222
  Serious: No
  Sender: FDA-Public Use
  Company Number: None

PATIENT
  Sex: Female

DRUGS (1)
  1. AZITHROMYCIN [Suspect]
     Route: 048

REACTIONS (5)
  - DECREASED APPETITE [None]
  - PRODUCT SUBSTITUTION ISSUE [None]
  - GASTROINTESTINAL PAIN [None]
  - NAUSEA [None]
  - PYREXIA [None]
